FAERS Safety Report 9632322 (Version 3)
Quarter: 2014Q1

REPORT INFORMATION
  Report Type: Spontaneous
  Country: JP (occurrence: JP)
  Receive Date: 20131018
  Receipt Date: 20140225
  Transmission Date: 20141002
  Serious: Yes (Other)
  Sender: FDA-Public Use
  Company Number: JP-JNJFOC-20131008623

PATIENT
  Age: 84 Year
  Sex: Female
  Weight: 44 kg

DRUGS (5)
  1. XARELTO [Suspect]
     Indication: CEREBROVASCULAR ACCIDENT PROPHYLAXIS
     Route: 048
     Dates: end: 20131001
  2. RABEPRAZOLE SODIUM [Concomitant]
     Route: 048
  3. CRESTOR [Concomitant]
     Route: 048
  4. ARTIST [Concomitant]
     Route: 048
  5. TAKA-DIASTASE [Concomitant]
     Route: 048

REACTIONS (1)
  - Embolic stroke [Recovering/Resolving]
